FAERS Safety Report 19978280 (Version 1)
Quarter: 2021Q4

REPORT INFORMATION
  Report Type: Spontaneous
  Country: US (occurrence: US)
  Receive Date: 20211019
  Receipt Date: 20211019
  Transmission Date: 20220303
  Serious: Yes (Hospitalization)
  Sender: FDA-Public Use
  Company Number: None

PATIENT
  Age: 69 Year
  Sex: Female

DRUGS (1)
  1. PRALUENT [Suspect]
     Active Substance: ALIROCUMAB
     Dosage: OTHER FREQUENCY:OTHER;
     Route: 058
     Dates: start: 202012

REACTIONS (1)
  - Diabetic retinopathy [None]

NARRATIVE: CASE EVENT DATE: 20211018
